FAERS Safety Report 18466869 (Version 2)
Quarter: 2020Q4

REPORT INFORMATION
  Report Type: Spontaneous
  Country: JP (occurrence: JP)
  Receive Date: 20201105
  Receipt Date: 20201122
  Transmission Date: 20210114
  Serious: Yes (Other)
  Sender: FDA-Public Use
  Company Number: JP-UCBSA-2020044132

PATIENT
  Age: 63 Year
  Sex: Male

DRUGS (4)
  1. IMIDAPRIL HYDROCHLORIDE [Concomitant]
     Active Substance: IMIDAPRIL HYDROCHLORIDE
  2. ADALAT [Concomitant]
     Active Substance: NIFEDIPINE
  3. CIMZIA [Suspect]
     Active Substance: CERTOLIZUMAB PEGOL
     Indication: RHEUMATOID ARTHRITIS
     Dosage: 200 MILLIGRAM, EV 2 WEEKS(QOW)
     Route: 058
     Dates: start: 20170501, end: 201912
  4. CARERAM [Concomitant]
     Active Substance: IGURATIMOD

REACTIONS (1)
  - Spinal ligament ossification [Recovered/Resolved]

NARRATIVE: CASE EVENT DATE: 20191209
